FAERS Safety Report 9326349 (Version 3)
Quarter: 2013Q2

REPORT INFORMATION
  Report Type: Spontaneous
  Country: US (occurrence: US)
  Receive Date: 20130604
  Receipt Date: 20130606
  Transmission Date: 20140414
  Serious: Yes (Other)
  Sender: FDA-Public Use
  Company Number: US-BAYER-2013-068307

PATIENT
  Age: 21 Year
  Sex: Male

DRUGS (1)
  1. KOGENATE FS [Suspect]
     Indication: FACTOR VIII DEFICIENCY
     Dosage: 50 IU/KG TOTAL

REACTIONS (4)
  - Anti factor VIII antibody positive [None]
  - Haemorrhage [None]
  - Wound secretion [Recovering/Resolving]
  - Swelling [Recovering/Resolving]
